FAERS Safety Report 20994022 (Version 1)
Quarter: 2022Q2

REPORT INFORMATION
  Report Type: Spontaneous
  Country: GB (occurrence: GB)
  Receive Date: 20220622
  Receipt Date: 20220622
  Transmission Date: 20220721
  Serious: Yes (Other)
  Sender: FDA-Public Use
  Company Number: GB-GILEAD-2022-0583529

PATIENT
  Age: 10 Year

DRUGS (6)
  1. VORICONAZOLE [Suspect]
     Active Substance: VORICONAZOLE
     Indication: Disseminated aspergillosis
     Dosage: 9 MILLIGRAM/KILOGRAM, BID (9 MG/KG, BID)
     Route: 042
  2. VORICONAZOLE [Suspect]
     Active Substance: VORICONAZOLE
     Dosage: 8 MILLIGRAM/KILOGRAM (8 MG/KG)
     Route: 042
  3. VORICONAZOLE [Suspect]
     Active Substance: VORICONAZOLE
     Dosage: 2MG/L, TDM
  4. AMBISOME [Suspect]
     Active Substance: AMPHOTERICIN B
     Indication: Disseminated aspergillosis
     Dosage: 3 MILLIGRAM/KILOGRAM, QD (3 MG/KG, QD)
  5. CASPOFUNGIN [Concomitant]
     Active Substance: CASPOFUNGIN
     Dosage: UNK
  6. ISAVUCONAZOLE [Concomitant]
     Active Substance: ISAVUCONAZOLE
     Dosage: UNK

REACTIONS (5)
  - Brain abscess [Unknown]
  - Seizure [Unknown]
  - Cerebral microhaemorrhage [Unknown]
  - Alanine aminotransferase increased [Unknown]
  - Granuloma [Unknown]
